FAERS Safety Report 8378465-2 (Version None)
Quarter: 2012Q2

REPORT INFORMATION
  Report Type: 
  Country: None (occurrence: None)
  Receive Date: 20120522
  Receipt Date: 20111216
  Transmission Date: 20120825
  Serious: No
  Sender: FDA-Public Use
  Company Number: US-ASTRAZENECA-2011SE76379

PATIENT
  Sex: Female

DRUGS (1)
  1. OMEPRAZOLE [Suspect]
     Route: 048

REACTIONS (5)
  - HIATUS HERNIA [None]
  - OEDEMA PERIPHERAL [None]
  - RASH [None]
  - HYPERSENSITIVITY [None]
  - FLATULENCE [None]
